FAERS Safety Report 11455242 (Version 1)
Quarter: 2015Q3

REPORT INFORMATION
  Report Type: Spontaneous
  Country: CH (occurrence: IN)
  Receive Date: 20150903
  Receipt Date: 20150903
  Transmission Date: 20151125
  Serious: Yes (Hospitalization)
  Sender: FDA-Public Use
  Company Number: CH-LPDUSPRD-20150654

PATIENT
  Age: 18 Year
  Sex: Male

DRUGS (5)
  1. CHLOROQUINE PHOSPHATE. [Concomitant]
     Active Substance: CHLOROQUINE PHOSPHATE
     Route: 065
  2. METHYLCOBALAMINE [Concomitant]
     Dosage: DOSE NOT PROVIDED
     Route: 065
  3. VENOFER [Suspect]
     Active Substance: IRON SUCROSE
     Dosage: DOSE UNKNOWN
     Route: 051
  4. FOLIC ACID. [Concomitant]
     Active Substance: FOLIC ACID
     Route: 065
  5. PRIMAQUIN [Concomitant]
     Route: 065

REACTIONS (3)
  - Paroxysmal nocturnal haemoglobinuria [Unknown]
  - Haemoglobinuria [Unknown]
  - Abdominal pain [Unknown]
